FAERS Safety Report 9140258 (Version 3)
Quarter: 2013Q2

REPORT INFORMATION
  Report Type: Report from Study
  Country: US (occurrence: US)
  Receive Date: 20130305
  Receipt Date: 20130506
  Transmission Date: 20140414
  Serious: Yes (Other)
  Sender: FDA-Public Use
  Company Number: PHEH2013US005251

PATIENT
  Age: 49 Year
  Sex: Female

DRUGS (5)
  1. GILENYA [Suspect]
     Indication: MULTIPLE SCLEROSIS
     Dosage: 0.5 MG, QD
     Route: 048
     Dates: start: 20120824, end: 20130214
  2. ADDERALL [Concomitant]
  3. VIMPAT [Concomitant]
  4. CYMBALTA [Concomitant]
  5. TIZANIDINE [Concomitant]

REACTIONS (3)
  - Renal impairment [Unknown]
  - Blood urea increased [Unknown]
  - Leukopenia [Recovering/Resolving]
